FAERS Safety Report 8020633-3 (Version None)
Quarter: 2012Q1

REPORT INFORMATION
  Report Type: 
  Country: None (occurrence: None)
  Receive Date: 20120103
  Receipt Date: 20111223
  Transmission Date: 20120608
  Serious: Yes (Hospitalization, Other)
  Sender: FDA-Public Use
  Company Number: US-ASTRAZENECA-2011SE78100

PATIENT
  Age: 76 Year
  Sex: Female
  Weight: 55.3 kg

DRUGS (10)
  1. CENTRUM SILVER ULTRA WOMEN'S [Suspect]
     Indication: MEDICAL DIET
     Dosage: DAILY
     Route: 048
     Dates: start: 20110401, end: 20111101
  2. HYDROGEN PEROXIDE SOLUTION [Suspect]
     Indication: OROPHARYNGEAL PAIN
     Route: 048
     Dates: start: 20110101
  3. NYSTATIN [Suspect]
     Indication: OROPHARYNGEAL PAIN
     Dosage: ONE TEASPOON EVERY SIX HOURS
     Route: 048
     Dates: start: 20110101
  4. UNSPECIFIED NOSE SPRAY [Suspect]
     Indication: OROPHARYNGEAL PAIN
     Route: 065
     Dates: start: 20110101
  5. UNSPECIFIED MEDICATION [Suspect]
     Route: 065
     Dates: start: 20110101, end: 20110101
  6. CLARITIN [Suspect]
     Indication: OROPHARYNGEAL PAIN
     Route: 048
     Dates: start: 20110101
  7. PRILOSEC [Suspect]
     Dosage: TWO TIMES A DAY
     Route: 048
     Dates: start: 20110101, end: 20110101
  8. UNSPECIFIED ALLERGY TABLET [Suspect]
     Indication: OROPHARYNGEAL PAIN
     Route: 048
     Dates: start: 20110101
  9. CLARITIN-D [Suspect]
     Indication: OROPHARYNGEAL PAIN
     Route: 048
     Dates: start: 20110101
  10. LUNESTA [Concomitant]
     Indication: SLEEP DISORDER

REACTIONS (11)
  - PAIN IN EXTREMITY [None]
  - HYPERSENSITIVITY [None]
  - DRUG INEFFECTIVE [None]
  - TRANSIENT ISCHAEMIC ATTACK [None]
  - TINNITUS [None]
  - DRY MOUTH [None]
  - DRY THROAT [None]
  - DYSPEPSIA [None]
  - MUSCULOSKELETAL STIFFNESS [None]
  - OROPHARYNGEAL PAIN [None]
  - HEAD DISCOMFORT [None]
